FAERS Safety Report 12983274 (Version 1)
Quarter: 2016Q4

REPORT INFORMATION
  Report Type: Spontaneous
  Country: NZ (occurrence: NZ)
  Receive Date: 20161129
  Receipt Date: 20161129
  Transmission Date: 20170207
  Serious: Yes (Hospitalization)
  Sender: FDA-Public Use
  Company Number: NZ-ABBVIE-16P-118-1726045-00

PATIENT
  Sex: Female

DRUGS (2)
  1. VIEKIRA PAK-RBV [Suspect]
     Active Substance: DASABUVIR\OMBITASVIR\PARITAPREVIR\RIBAVIRIN\RITONAVIR
     Indication: HEPATITIS C
     Dosage: OMBITASVIR/PARITAPREVIR/RITONAVIR 12.5/75/50 MG 2 TABS AM , DASABUVIR 250MG AT HS
     Route: 048
     Dates: start: 20160815, end: 20160904
  2. RIBAVIRIN. [Suspect]
     Active Substance: RIBAVIRIN
     Indication: HEPATITIS C
     Route: 048
     Dates: start: 20160815, end: 20160904

REACTIONS (6)
  - Anxiety [Unknown]
  - Rash [Unknown]
  - Confusional state [Unknown]
  - Nervousness [Unknown]
  - Fatigue [Unknown]
  - Malaise [Unknown]
